FAERS Safety Report 4459980-0 (Version None)
Quarter: 2004Q3

REPORT INFORMATION
  Report Type: 
  Country: None (occurrence: None)
  Receive Date: 20040928
  Receipt Date: 20030919
  Transmission Date: 20050211
  Serious: No
  Sender: FDA-Public Use
  Company Number: US-GLAXOSMITHKLINE-A0426598A

PATIENT
  Age: 72 Year
  Sex: Female

DRUGS (16)
  1. SEREVENT [Suspect]
     Indication: ASTHMA
     Dosage: 1PUFF PER DAY
     Route: 055
     Dates: start: 20030501, end: 20030501
  2. VIOXX [Concomitant]
  3. LIPITOR [Concomitant]
  4. ASPIRIN [Concomitant]
  5. CLARITIN-D [Concomitant]
  6. AZULFIDINE [Concomitant]
  7. SINGULAIR [Concomitant]
  8. PROTONIX [Concomitant]
  9. ULTRAM [Concomitant]
  10. HYDROCHLOROTHIAZIDE [Concomitant]
  11. DIOVAN [Concomitant]
  12. HYDROCODONE [Concomitant]
  13. SEREVENT [Concomitant]
  14. FLOVENT [Concomitant]
  15. NASONEX [Concomitant]
  16. ZADITOR [Concomitant]

REACTIONS (2)
  - APHONIA [None]
  - COUGH [None]
